FAERS Safety Report 7202213-2 (Version None)
Quarter: 2010Q4

REPORT INFORMATION
  Report Type: 
  Country: None (occurrence: None)
  Receive Date: 20101229
  Receipt Date: 20101217
  Transmission Date: 20110411
  Serious: Yes (Hospitalization, Other)
  Sender: FDA-Public Use
  Company Number: GB-PFIZER INC-2010175373

PATIENT
  Age: 16 Year
  Sex: Male

DRUGS (3)
  1. EPANUTIN [Suspect]
     Dosage: 160 MG, 2X/DAY
     Route: 048
  2. PHENYTOIN [Suspect]
  3. CLONAZEPAM [Suspect]

REACTIONS (4)
  - DRUG INEFFECTIVE [None]
  - DRUG LEVEL FLUCTUATING [None]
  - GASTROSTOMY [None]
  - WITHDRAWAL SYNDROME [None]
